FAERS Safety Report 5627627-3 (Version None)
Quarter: 2008Q1

REPORT INFORMATION
  Report Type: 
  Country: None (occurrence: None)
  Receive Date: 20080214
  Receipt Date: 20080214
  Transmission Date: 20080703
  Serious: Yes (Other)
  Sender: FDA-Public Use
  Company Number: None

PATIENT
  Age: 53 Year
  Sex: Male
  Weight: 63.5036 kg

DRUGS (1)
  1. PRO-HEALTH NIGHT TOOTHPASTE CREST [Suspect]
     Indication: DENTAL CARE
     Dosage: 2X A DAY TOP
     Route: 061
     Dates: start: 20080101, end: 20080208

REACTIONS (2)
  - INCORRECT ROUTE OF DRUG ADMINISTRATION [None]
  - RASH [None]
